FAERS Safety Report 6663804-0 (Version None)
Quarter: 2010Q1

REPORT INFORMATION
  Report Type: 
  Country: None (occurrence: None)
  Receive Date: 20100325
  Receipt Date: 20091119
  Transmission Date: 20100710
  Serious: No
  Sender: FDA-Public Use
  Company Number: 2009-00757

PATIENT
  Age: 42 Year
  Sex: Female
  Weight: 49.8957 kg

DRUGS (1)
  1. COLD REMEDY CHEWABLES [Suspect]
     Dosage: QD ONE DOSE
     Dates: start: 20091117, end: 20091117

REACTIONS (1)
  - AGEUSIA [None]
